FAERS Safety Report 23652249 (Version 1)
Quarter: 2024Q1

REPORT INFORMATION
  Report Type: Spontaneous
  Country: ES (occurrence: ES)
  Receive Date: 20240320
  Receipt Date: 20240320
  Transmission Date: 20240409
  Serious: Yes (Other)
  Sender: FDA-Public Use
  Company Number: ES-TEVA-VS-3171565

PATIENT
  Age: 36 Year
  Sex: Female

DRUGS (1)
  1. COPAXONE [Suspect]
     Active Substance: GLATIRAMER ACETATE
     Indication: Relapsing-remitting multiple sclerosis
     Dosage: DOSAGE: 40 MG/ML
     Route: 065

REACTIONS (13)
  - Asphyxia [Recovering/Resolving]
  - Visual impairment [Recovering/Resolving]
  - Malaise [Recovering/Resolving]
  - Nervousness [Recovering/Resolving]
  - Feeling abnormal [Recovering/Resolving]
  - Feeling cold [Recovering/Resolving]
  - Chills [Recovering/Resolving]
  - Injection site mass [Recovering/Resolving]
  - Injection site pain [Recovering/Resolving]
  - Injection site inflammation [Recovering/Resolving]
  - Injection site urticaria [Recovering/Resolving]
  - Chest pain [Recovering/Resolving]
  - Dizziness [Recovering/Resolving]

NARRATIVE: CASE EVENT DATE: 20240201
